FAERS Safety Report 15900722 (Version 1)
Quarter: 2019Q1

REPORT INFORMATION
  Report Type: Spontaneous
  Country: CO (occurrence: CO)
  Receive Date: 20190201
  Receipt Date: 20190201
  Transmission Date: 20190417
  Serious: Yes (Other)
  Sender: FDA-Public Use
  Company Number: CO-PFIZER INC-2019041256

PATIENT
  Age: 15 Day
  Sex: Male

DRUGS (1)
  1. INFANTS ADVIL [Suspect]
     Active Substance: IBUPROFEN
     Indication: PYREXIA
     Dosage: HALF A SPOON

REACTIONS (3)
  - Product use issue [Unknown]
  - Prescription drug used without a prescription [None]
  - Hyperventilation [Unknown]
